FAERS Safety Report 4268868-X (Version None)
Quarter: 2004Q1

REPORT INFORMATION
  Report Type: 
  Country: None (occurrence: None)
  Receive Date: 20040109
  Receipt Date: 20031230
  Transmission Date: 20041129
  Serious: Yes (Death)
  Sender: FDA-Public Use
  Company Number: HQWYE057605JAN04

PATIENT
  Sex: Male

DRUGS (2)
  1. EFFEXOR [Suspect]
     Dosage: ORAL
     Route: 048
  2. ALCOHOL (ETHANOL,) [Suspect]
     Dosage: ORAL
     Route: 048

REACTIONS (2)
  - ALCOHOL INTERACTION [None]
  - COMPLETED SUICIDE [None]
